FAERS Safety Report 17812623 (Version 2)
Quarter: 2020Q2

REPORT INFORMATION
  Report Type: Spontaneous
  Country: IT (occurrence: IT)
  Receive Date: 20200521
  Receipt Date: 20200602
  Transmission Date: 20200714
  Serious: Yes (Other)
  Sender: FDA-Public Use
  Company Number: IT-MYLANLABS-2020M1049359

PATIENT
  Age: 77 Year
  Sex: Male

DRUGS (11)
  1. URBASON SOLUB [Concomitant]
     Active Substance: METHYLPREDNISOLONE SODIUM SUCCINATE
     Dosage: 40 MILLIGRAM
     Route: 065
     Dates: start: 20200327, end: 20200330
  2. DALACIN C                          /00166001/ [Concomitant]
     Active Substance: CLINDAMYCIN PHOSPHATE
     Dosage: UNK
     Route: 065
     Dates: start: 20200320, end: 20200330
  3. MAGNESIUM SULFATE. [Concomitant]
     Active Substance: MAGNESIUM SULFATE
     Dosage: 1 GRAM
     Route: 042
     Dates: start: 20200328, end: 20200330
  4. CLINDAMICINA FOSFATO [Concomitant]
     Active Substance: CLINDAMYCIN PHOSPHATE
     Dosage: 1800 MILLIGRAM
     Route: 065
     Dates: start: 20200320, end: 20200330
  5. LOPINAVIR/RITONAVIR [Suspect]
     Active Substance: LOPINAVIR\RITONAVIR
     Indication: COVID-19
     Dosage: 1 GRAM, QD
     Route: 048
     Dates: start: 20200320, end: 20200330
  6. ROACTEMRA [Suspect]
     Active Substance: TOCILIZUMAB
     Indication: COVID-19
     Dosage: 640 MILLIGRAM, TOTAL
     Route: 042
     Dates: start: 20200321, end: 20200321
  7. LASIX [Concomitant]
     Active Substance: FUROSEMIDE
     Dosage: 40 MILLIGRAM
     Route: 042
     Dates: start: 20200326, end: 20200402
  8. PLAQUENIL                          /00072602/ [Suspect]
     Active Substance: HYDROXYCHLOROQUINE DIPHOSPHATE
     Indication: COVID-19
     Dosage: 400 MILLIGRAM, QD
     Route: 048
     Dates: start: 20200320, end: 20200330
  9. CEFTRIAXONE DISODIUM [Concomitant]
     Active Substance: CEFTRIAXONE
     Dosage: UNK
     Route: 065
     Dates: start: 20200320, end: 20200330
  10. KAYEXALATE [Concomitant]
     Active Substance: SODIUM POLYSTYRENE SULFONATE
     Dosage: 28 GRAM
     Route: 048
     Dates: start: 20200328, end: 20200402
  11. HEPARIN [Concomitant]
     Active Substance: HEPARIN SODIUM
     Dosage: 2500 KILO-INTERNATIONAL UNIT
     Route: 065
     Dates: start: 20200323, end: 20200330

REACTIONS (2)
  - Alanine aminotransferase increased [Unknown]
  - Off label use [Unknown]

NARRATIVE: CASE EVENT DATE: 20200329
